FAERS Safety Report 9277067 (Version 3)
Quarter: 2014Q1

REPORT INFORMATION
  Report Type: Spontaneous
  Country: FR (occurrence: FR)
  Receive Date: 20130507
  Receipt Date: 20140130
  Transmission Date: 20141002
  Serious: Yes (Disabling, Congenital Anomaly, Other)
  Sender: FDA-Public Use
  Company Number: FR-009507513-0603FRA00061

PATIENT
  Age: 24 Year
  Sex: Female

DRUGS (3)
  1. SINGULAIR [Suspect]
     Indication: ASTHMA
     Dosage: 10 MG, QD
     Route: 048
     Dates: start: 20040415
  2. FLUTICASONE PROPIONATE (+) SALMETEROL XINAFOATE [Suspect]
     Indication: ASTHMA
     Dosage: 250/50
     Route: 055
     Dates: start: 20040415
  3. FENOTEROL HYDROBROMIDE (+) IPRATROPIUM BROMIDE [Suspect]
     Indication: ASTHMA
     Dosage: 600/240
     Route: 055
     Dates: start: 20040415

REACTIONS (8)
  - Congenital hand malformation [Recovering/Resolving]
  - Exposure during pregnancy [Recovered/Resolved]
  - Haemangioma [Recovering/Resolving]
  - Low birth weight baby [Unknown]
  - Body height below normal [Unknown]
  - Adactyly [Unknown]
  - Syndactyly [Unknown]
  - Brachydactyly [Unknown]
